FAERS Safety Report 24693625 (Version 5)
Quarter: 2025Q2

REPORT INFORMATION
  Report Type: Spontaneous
  Country: CA (occurrence: CA)
  Receive Date: 20241204
  Receipt Date: 20250616
  Transmission Date: 20250717
  Serious: Yes (Death, Other)
  Sender: Haleon PLC
  Company Number: CA-TAKEDA-2023TUS077091

PATIENT
  Age: 36 Year
  Sex: Female

DRUGS (225)
  1. FLONASE ALLERGY RELIEF [Suspect]
     Active Substance: FLUTICASONE PROPIONATE
     Indication: Rheumatoid arthritis
     Dosage: 500 MILLIGRAM, QD, DOSE FORM, ROUTE: UNK
  2. FLONASE ALLERGY RELIEF [Suspect]
     Active Substance: FLUTICASONE PROPIONATE
     Dosage: 500 MILLIGRAM, Q12H, DOSE FORM, ROUTE: UNK
  3. FLONASE ALLERGY RELIEF [Suspect]
     Active Substance: FLUTICASONE PROPIONATE
  4. FLONASE ALLERGY RELIEF [Suspect]
     Active Substance: FLUTICASONE PROPIONATE
     Dosage: 500 MILLIGRAM, BID, DOSE FORM, ROUTE: UNK
  5. FLONASE ALLERGY RELIEF [Suspect]
     Active Substance: FLUTICASONE PROPIONATE
     Dosage: 1000 MILLIGRAM, QD, DOSE FORM, ROUTE: UNK
  6. FLONASE ALLERGY RELIEF [Suspect]
     Active Substance: FLUTICASONE PROPIONATE
     Dosage: 500 MG (1 EVERY 5 DAYS), DOSE FORM, ROUTE: UNK
  7. FLONASE ALLERGY RELIEF [Suspect]
     Active Substance: FLUTICASONE PROPIONATE
     Dosage: 500 MG (1 EVERY 5 DAYS), DOSE FORM, ROUTE: UNK
  8. CETIRIZINE [Suspect]
     Active Substance: CETIRIZINE HYDROCHLORIDE
     Indication: Rheumatoid arthritis
  9. DIPHENHYDRAMINE [Suspect]
     Active Substance: DIPHENHYDRAMINE
     Indication: Rheumatoid arthritis
  10. DIPHENHYDRAMINE [Suspect]
     Active Substance: DIPHENHYDRAMINE
     Dosage: DOSE FORM: CAPSULE, ROUTE: UNK
  11. DOLUTEGRAVIR SODIUM [Suspect]
     Active Substance: DOLUTEGRAVIR SODIUM
     Indication: Product used for unknown indication
  12. EX-LAX REGULAR STRENGTH [Suspect]
     Active Substance: SENNOSIDES
     Indication: Product used for unknown indication
  13. HERBALS\SENNA LEAF\SENNOSIDES [Suspect]
     Active Substance: HERBALS\SENNA LEAF\SENNOSIDES
     Indication: Product used for unknown indication
  14. REMICADE [Suspect]
     Active Substance: INFLIXIMAB
     Indication: Product used for unknown indication
  15. REMICADE [Suspect]
     Active Substance: INFLIXIMAB
  16. REMICADE [Suspect]
     Active Substance: INFLIXIMAB
  17. FLOVENT [Suspect]
     Active Substance: FLUTICASONE PROPIONATE
     Indication: Product used for unknown indication
  18. CODEINE [Suspect]
     Active Substance: CODEINE
     Indication: Product used for unknown indication
  19. CODEINE [Suspect]
     Active Substance: CODEINE
  20. ABACAVIR SULFATE\LAMIVUDINE [Suspect]
     Active Substance: ABACAVIR SULFATE\LAMIVUDINE
     Indication: Product used for unknown indication
  21. OXYCODONE AND ACETAMINOPHEN [Suspect]
     Active Substance: ACETAMINOPHEN\OXYCODONE HYDROCHLORIDE
     Indication: Product used for unknown indication
  22. ABACAVIR [Suspect]
     Active Substance: ABACAVIR
     Indication: Product used for unknown indication
  23. ENBREL [Suspect]
     Active Substance: ETANERCEPT
     Indication: Rheumatoid arthritis
  24. PANTOPRAZOLE SODIUM [Suspect]
     Active Substance: PANTOPRAZOLE SODIUM
     Indication: Product used for unknown indication
  25. VITAMIN C [Suspect]
     Active Substance: ASCORBIC ACID
     Indication: Product used for unknown indication
  26. VITAMIN C [Suspect]
     Active Substance: ASCORBIC ACID
  27. RESTORIL [Suspect]
     Active Substance: TEMAZEPAM
     Indication: Product used for unknown indication
  28. RESTORIL [Suspect]
     Active Substance: TEMAZEPAM
  29. RESTORIL [Suspect]
     Active Substance: TEMAZEPAM
  30. ACETAMINOPHEN\CODEINE PHOSPHATE [Suspect]
     Active Substance: ACETAMINOPHEN\CODEINE PHOSPHATE
     Indication: Product used for unknown indication
  31. ASPIRIN\OXYCODONE HYDROCHLORIDE\OXYCODONE TEREPHTHALATE [Suspect]
     Active Substance: ASPIRIN\OXYCODONE HYDROCHLORIDE\OXYCODONE TEREPHTHALATE
     Indication: Product used for unknown indication
  32. SENNA LEAF [Suspect]
     Active Substance: SENNA LEAF
     Indication: Product used for unknown indication
  33. SENNA LEAF [Suspect]
     Active Substance: SENNA LEAF
  34. SENNA LEAF [Suspect]
     Active Substance: SENNA LEAF
  35. SENNA LEAF [Suspect]
     Active Substance: SENNA LEAF
  36. SENNA LEAF [Suspect]
     Active Substance: SENNA LEAF
  37. SENNA LEAF [Suspect]
     Active Substance: SENNA LEAF
  38. KETOPROFEN [Suspect]
     Active Substance: KETOPROFEN
     Indication: Product used for unknown indication
  39. HYDROMORPHONE [Suspect]
     Active Substance: HYDROMORPHONE
     Indication: Product used for unknown indication
  40. ALBUTEROL SULFATE [Suspect]
     Active Substance: ALBUTEROL SULFATE
     Indication: Rheumatoid arthritis
  41. HERBALS [Suspect]
     Active Substance: HERBALS
     Indication: Product used for unknown indication
  42. HERBALS [Suspect]
     Active Substance: HERBALS
  43. HERBALS [Suspect]
     Active Substance: HERBALS
  44. HERBALS [Suspect]
     Active Substance: HERBALS
  45. CETIRIZINE [Suspect]
     Active Substance: CETIRIZINE HYDROCHLORIDE
     Indication: Rheumatoid arthritis
  46. CETIRIZINE [Suspect]
     Active Substance: CETIRIZINE HYDROCHLORIDE
     Dosage: 25 MILLIGRAM, QD, DOSE FORM: FILM-COATED TABLET, ROUTE: UNK
  47. CETIRIZINE [Suspect]
     Active Substance: CETIRIZINE HYDROCHLORIDE
     Dosage: 20 MILLIGRAM, QD, DOSE FORM: FILM-COATED TABLET, ROUTE: UNK
  48. CETIRIZINE [Suspect]
     Active Substance: CETIRIZINE HYDROCHLORIDE
     Dosage: 20 MILLIGRAM, QD, DOSE FORM: FILM-COATED TABLET, ROUTE: UNK
  49. CETIRIZINE [Suspect]
     Active Substance: CETIRIZINE HYDROCHLORIDE
  50. ORENCIA [Suspect]
     Active Substance: ABATACEPT
     Indication: Product used for unknown indication
  51. ORENCIA [Suspect]
     Active Substance: ABATACEPT
     Dosage: 1 DOSAGE FORM, QD, DOSE FORM: UNK, ROUTE: INTRAVENOUS (NOT OTHERWISE SPECIFIED)
  52. ORENCIA [Suspect]
     Active Substance: ABATACEPT
     Dosage: 1 DOSAGE FORM, QD, DOSE FORM, ROUTE: UNK
  53. ORENCIA [Suspect]
     Active Substance: ABATACEPT
     Dosage: 1 DOSAGE FORM, 1/WEEK, DOSE FORM: UNK, ROUTE: INTRAVENOUS (NOT OTHERWISE SPECIFIED)
  54. CLONIDINE [Suspect]
     Active Substance: CLONIDINE
     Indication: Eczema
  55. PSYLLIUM HUSK [Suspect]
     Active Substance: PSYLLIUM HUSK
     Indication: Product used for unknown indication
  56. SENOKOT [Suspect]
     Active Substance: SENNOSIDES
     Indication: Product used for unknown indication
  57. PREDNISOLONE SODIUM PHOSPHATE [Suspect]
     Active Substance: PREDNISOLONE SODIUM PHOSPHATE
     Indication: Product used for unknown indication
  58. DICLOFENAC SODIUM [Suspect]
     Active Substance: DICLOFENAC SODIUM
     Indication: Product used for unknown indication
  59. MONTELUKAST SODIUM [Suspect]
     Active Substance: MONTELUKAST SODIUM
     Indication: Product used for unknown indication
  60. MONTELUKAST SODIUM [Suspect]
     Active Substance: MONTELUKAST SODIUM
  61. WELLBUTRIN [Suspect]
     Active Substance: BUPROPION HYDROCHLORIDE
     Indication: Product used for unknown indication
  62. WELLBUTRIN [Suspect]
     Active Substance: BUPROPION HYDROCHLORIDE
  63. WELLBUTRIN [Suspect]
     Active Substance: BUPROPION HYDROCHLORIDE
  64. WELLBUTRIN [Suspect]
     Active Substance: BUPROPION HYDROCHLORIDE
  65. TEMAZEPAM [Suspect]
     Active Substance: TEMAZEPAM
     Indication: Product used for unknown indication
  66. ONDANSETRON [Suspect]
     Active Substance: ONDANSETRON
     Indication: Product used for unknown indication
  67. ONDANSETRON [Suspect]
     Active Substance: ONDANSETRON
  68. ADVAIR HFA [Suspect]
     Active Substance: FLUTICASONE PROPIONATE\SALMETEROL XINAFOATE
     Indication: Rheumatoid arthritis
     Dosage: 500 MILLIGRAM, QD, DOSE FORM, ROUTE: UNK
  69. ADVAIR HFA [Suspect]
     Active Substance: FLUTICASONE PROPIONATE\SALMETEROL XINAFOATE
     Dosage: 500 MILLIGRAM, Q12H, DOSE FORM, ROUTE: UNK
  70. ADVAIR HFA [Suspect]
     Active Substance: FLUTICASONE PROPIONATE\SALMETEROL XINAFOATE
     Dosage: 2 DOSAGE FORM, QD, DOSE FORM, ROUTE: UNK
  71. ADVAIR HFA [Suspect]
     Active Substance: FLUTICASONE PROPIONATE\SALMETEROL XINAFOATE
  72. ADVAIR HFA [Suspect]
     Active Substance: FLUTICASONE PROPIONATE\SALMETEROL XINAFOATE
     Dosage: 500 MILLIGRAM, BID, DOSE FORM, ROUTE: UNK
  73. ADVAIR HFA [Suspect]
     Active Substance: FLUTICASONE PROPIONATE\SALMETEROL XINAFOATE
     Dosage: 1000 MILLIGRAM, QD, DOSE FORM, ROUTE: UNK
  74. ADVAIR HFA [Suspect]
     Active Substance: FLUTICASONE PROPIONATE\SALMETEROL XINAFOATE
     Dosage: DOSE FORM, ROUTE: UNK
  75. CODEINE GUAIFENESIN [Suspect]
     Active Substance: CODEINE PHOSPHATE\GUAIFENESIN
     Indication: Product used for unknown indication
  76. CETIRIZINE HYDROCHLORIDE [Suspect]
     Active Substance: CETIRIZINE HYDROCHLORIDE
     Indication: Product used for unknown indication
     Dosage: 20 MILLIGRAM, QD, ROUTE: UNK
  77. CETIRIZINE HYDROCHLORIDE [Suspect]
     Active Substance: CETIRIZINE HYDROCHLORIDE
     Dosage: 20 MILLIGRAM, QD, ROUTE: UNK
  78. PANTOPRAZOLE SODIUM [Suspect]
     Active Substance: PANTOPRAZOLE SODIUM
     Indication: Product used for unknown indication
  79. METHYLPREDNISOLONE SODIUM PHOSPHATE [Suspect]
     Active Substance: METHYLPREDNISOLONE SODIUM PHOSPHATE
     Indication: Product used for unknown indication
  80. FLUTICASONE PROPIONATE\SALMETEROL XINAFOATE [Suspect]
     Active Substance: FLUTICASONE PROPIONATE\SALMETEROL XINAFOATE
     Indication: Product used for unknown indication
     Dosage: 500 MILLIGRAM, BID, DOSE FORM, ROUTE: UNK
  81. ABACAVIR SULFATE [Suspect]
     Active Substance: ABACAVIR SULFATE
     Indication: Product used for unknown indication
  82. ABACAVIR SULFATE [Suspect]
     Active Substance: ABACAVIR SULFATE
  83. CYCLOBENZAPRINE [Suspect]
     Active Substance: CYCLOBENZAPRINE
     Indication: Eczema
  84. CYCLOBENZAPRINE [Suspect]
     Active Substance: CYCLOBENZAPRINE
  85. MORPHINE SULFATE [Suspect]
     Active Substance: MORPHINE SULFATE
     Indication: Product used for unknown indication
  86. PANTOPRAZOLE MAGNESIUM [Suspect]
     Active Substance: PANTOPRAZOLE MAGNESIUM
     Indication: Product used for unknown indication
  87. PANTOPRAZOLE MAGNESIUM [Suspect]
     Active Substance: PANTOPRAZOLE MAGNESIUM
  88. ZOPICLONE [Suspect]
     Active Substance: ZOPICLONE
     Indication: Product used for unknown indication
  89. METHYLPREDNISOLONE SODIUM SUCCINATE [Suspect]
     Active Substance: METHYLPREDNISOLONE SODIUM SUCCINATE
     Indication: Product used for unknown indication
  90. METHYLPREDNISOLONE SODIUM SUCCINATE [Suspect]
     Active Substance: METHYLPREDNISOLONE SODIUM SUCCINATE
  91. BUPROPION HYDROCHLORIDE [Suspect]
     Active Substance: BUPROPION HYDROCHLORIDE
     Indication: Rheumatoid arthritis
  92. BUPROPION HYDROCHLORIDE [Suspect]
     Active Substance: BUPROPION HYDROCHLORIDE
     Dosage: ROUTE: UNK
  93. BUPROPION HYDROCHLORIDE [Suspect]
     Active Substance: BUPROPION HYDROCHLORIDE
     Dosage: ROUTE: UNK
  94. DIPHENHYDRAMINE [Suspect]
     Active Substance: DIPHENHYDRAMINE
     Indication: Rheumatoid arthritis
  95. DIPHENHYDRAMINE [Suspect]
     Active Substance: DIPHENHYDRAMINE
     Dosage: DOSE FORM, ROUTE: UNK
  96. DIPHENHYDRAMINE [Suspect]
     Active Substance: DIPHENHYDRAMINE
     Dosage: DOSE FORM, ROUTE: UNK
  97. DIPHENHYDRAMINE [Suspect]
     Active Substance: DIPHENHYDRAMINE
  98. HYDROMORPHONE HYDROCHLORIDE [Suspect]
     Active Substance: HYDROMORPHONE HYDROCHLORIDE
     Indication: Product used for unknown indication
  99. CHLORMEZANONE [Suspect]
     Active Substance: CHLORMEZANONE
     Indication: Rheumatoid arthritis
  100. CHLORMEZANONE [Suspect]
     Active Substance: CHLORMEZANONE
  101. CITALOPRAM HYDROBROMIDE [Suspect]
     Active Substance: CITALOPRAM HYDROBROMIDE
     Indication: Product used for unknown indication
  102. HERBALS\PLANTAGO OVATA LEAF [Suspect]
     Active Substance: HERBALS\PLANTAGO OVATA LEAF
     Indication: Product used for unknown indication
  103. PROGESTERONE [Suspect]
     Active Substance: PROGESTERONE
     Indication: Product used for unknown indication
  104. PROGESTERONE [Suspect]
     Active Substance: PROGESTERONE
  105. PROGESTERONE [Suspect]
     Active Substance: PROGESTERONE
  106. PROGESTERONE [Suspect]
     Active Substance: PROGESTERONE
  107. PROGESTERONE [Suspect]
     Active Substance: PROGESTERONE
  108. PROGESTERONE [Suspect]
     Active Substance: PROGESTERONE
  109. PROGESTERONE [Suspect]
     Active Substance: PROGESTERONE
  110. PROGESTERONE [Suspect]
     Active Substance: PROGESTERONE
  111. PROGESTERONE [Suspect]
     Active Substance: PROGESTERONE
  112. DEMEROL [Suspect]
     Active Substance: MEPERIDINE HYDROCHLORIDE
     Indication: Rheumatoid arthritis
  113. DICLOFENAC POTASSIUM [Suspect]
     Active Substance: DICLOFENAC POTASSIUM
     Indication: Product used for unknown indication
  114. DICLOFENAC SODIUM [Suspect]
     Active Substance: DICLOFENAC SODIUM
     Indication: Rheumatoid arthritis
  115. DICLOFENAC SODIUM [Suspect]
     Active Substance: DICLOFENAC SODIUM
     Indication: Product used for unknown indication
  116. ACETAMINOPHEN [Suspect]
     Active Substance: ACETAMINOPHEN
     Indication: Product used for unknown indication
  117. ALBUTEROL [Suspect]
     Active Substance: ALBUTEROL
     Indication: Product used for unknown indication
  118. ALBUTEROL [Suspect]
     Active Substance: ALBUTEROL
  119. ALBUTEROL [Suspect]
     Active Substance: ALBUTEROL
  120. ALBUTEROL [Suspect]
     Active Substance: ALBUTEROL
  121. METHYLPREDNISOLONE [Suspect]
     Active Substance: METHYLPREDNISOLONE
     Indication: Product used for unknown indication
     Dosage: 1 DOSAGE FORM, MONTHLY, DOSE FORM: SOLUTION FOR INJECTION, ROUTE: UNK
  122. TYLENOL [Suspect]
     Active Substance: ACETAMINOPHEN
     Indication: Product used for unknown indication
  123. SODIUM PICOSULFATE [Suspect]
     Active Substance: SODIUM PICOSULFATE
     Indication: Product used for unknown indication
  124. ALBUTEROL [Suspect]
     Active Substance: ALBUTEROL
     Indication: Product used for unknown indication
  125. QUETIAPINE FUMARATE [Suspect]
     Active Substance: QUETIAPINE FUMARATE
     Indication: Product used for unknown indication
  126. QUETIAPINE FUMARATE [Suspect]
     Active Substance: QUETIAPINE FUMARATE
  127. ACTEMRA [Suspect]
     Active Substance: TOCILIZUMAB
     Indication: Rheumatoid arthritis
  128. ACTEMRA [Suspect]
     Active Substance: TOCILIZUMAB
     Dosage: 50 MILLIGRAM, BID, DOSE FORM: UNK, ROUTE: OTHER
  129. ACTEMRA [Suspect]
     Active Substance: TOCILIZUMAB
     Dosage: 1000 MILLIGRAM, QD, DOSE FORM, UNK, ROUTE: SUBCUTANEOUS
  130. ACTEMRA [Suspect]
     Active Substance: TOCILIZUMAB
  131. ACTEMRA [Suspect]
     Active Substance: TOCILIZUMAB
     Dosage: 500 MILLIGRAM, Q12H, DOSE FORM, UNK, ROUTE: SUBCUTANEOUS
  132. ACTEMRA [Suspect]
     Active Substance: TOCILIZUMAB
  133. ACTEMRA [Suspect]
     Active Substance: TOCILIZUMAB
  134. ACTEMRA [Suspect]
     Active Substance: TOCILIZUMAB
     Dosage: 2 DOSAGE FORM, QD, DOSE FORM, ROUTE: UNK
  135. ACTEMRA [Suspect]
     Active Substance: TOCILIZUMAB
     Dosage: 500 MILLIGRAM, BID, DOSE FORM, UNK, ROUTE: SUBCUTANEOUS
  136. ACTEMRA [Suspect]
     Active Substance: TOCILIZUMAB
  137. ACTEMRA [Suspect]
     Active Substance: TOCILIZUMAB
     Dosage: DOSE FORM, ROUTE: UNK
  138. RITUXIMAB [Suspect]
     Active Substance: RITUXIMAB
     Indication: Rheumatoid arthritis
     Dosage: 1000 MILLIGRAM, QD, DOSE FORM: SOLUTION FOR INJECTION, ROUTE: INTRAVENOUS (NOT OTHERWISE SPECIFIED)
  139. RITUXIMAB [Suspect]
     Active Substance: RITUXIMAB
  140. RITUXIMAB [Suspect]
     Active Substance: RITUXIMAB
     Dosage: 1000 MILLIGRAM, QD, DOSE FORM: UNK, ROUTE: INTRAVENOUS (NOT OTHERWISE SPECIFIED)
  141. RITUXIMAB [Suspect]
     Active Substance: RITUXIMAB
  142. RITUXIMAB [Suspect]
     Active Substance: RITUXIMAB
     Dosage: 1000 MILLIGRAM, QD, DOSE FORM: UNK, ROUTE: INTRAVENOUS DRIP
  143. RITUXIMAB [Suspect]
     Active Substance: RITUXIMAB
     Dosage: 1000 MILLIGRAM, QD,  DOSE FORM: SOLUTION FOR INJECTION, ROUTE: INTRAVENOUS (NOT OTHERWISE SPECIFIED)
  144. RITUXIMAB [Suspect]
     Active Substance: RITUXIMAB
  145. RITUXIMAB [Suspect]
     Active Substance: RITUXIMAB
     Dosage: ROUTE: INTRAVENOUS (NOT OTHERWISE SPECIFIED)
  146. RITUXIMAB [Suspect]
     Active Substance: RITUXIMAB
  147. RITUXIMAB [Suspect]
     Active Substance: RITUXIMAB
  148. METHYLPREDNISOLONE ACETATE [Suspect]
     Active Substance: METHYLPREDNISOLONE ACETATE
     Indication: Product used for unknown indication
     Dosage: UNK UNK, QD, DOSE FORM: SOLUTION FOR INJECTION, ROUTE: UNK
  149. METHYLPREDNISOLONE ACETATE [Suspect]
     Active Substance: METHYLPREDNISOLONE ACETATE
     Dosage: UNK UNK, MONTHLY, DOSE FORM: SOLUTION FOR INJECTION, ROUTE: UNKNOWN
  150. METHYLPREDNISOLONE ACETATE [Suspect]
     Active Substance: METHYLPREDNISOLONE ACETATE
  151. METHYLPREDNISOLONE ACETATE [Suspect]
     Active Substance: METHYLPREDNISOLONE ACETATE
     Dosage: 1 DOSAGE FORM, QD, DOSE FORM: SOLUTION FOR INJECTION, ROUTE: UNK
  152. METHYLPREDNISOLONE ACETATE [Suspect]
     Active Substance: METHYLPREDNISOLONE ACETATE
     Dosage: UNK UNK, QOD, DOSE FORM: SOLUTION FOR INJECTION, ROUTE: UNK
  153. METHYLPREDNISOLONE ACETATE [Suspect]
     Active Substance: METHYLPREDNISOLONE ACETATE
     Dosage: 1 DOSAGE FORM, MONTHLY, DOSE FORM: SOLUTION FOR INJECTION, ROUTE: UNK
  154. METHYLPREDNISOLONE ACETATE [Suspect]
     Active Substance: METHYLPREDNISOLONE ACETATE
     Dosage: UNK UNK, BID, DOSE FORM: SOLUTION FOR INJECTION, ROUTE: UNK
  155. METHYLPREDNISOLONE ACETATE [Suspect]
     Active Substance: METHYLPREDNISOLONE ACETATE
  156. METHYLPREDNISOLONE ACETATE [Suspect]
     Active Substance: METHYLPREDNISOLONE ACETATE
     Dosage: 1 DOSAGE FORM, MONTHLY, DOSE FORM, ROUTE: UNK
  157. HERBALS\PLANTAGO INDICA WHOLE [Suspect]
     Active Substance: HERBALS\PLANTAGO INDICA WHOLE
     Indication: Product used for unknown indication
  158. DOLUTEGRAVIR SODIUM [Suspect]
     Active Substance: DOLUTEGRAVIR SODIUM
     Indication: Product used for unknown indication
  159. FLUCONAZOLE [Suspect]
     Active Substance: FLUCONAZOLE
     Indication: Product used for unknown indication
  160. NORTRIPTYLINE HYDROCHLORIDE [Suspect]
     Active Substance: NORTRIPTYLINE HYDROCHLORIDE
     Indication: Product used for unknown indication
  161. NORTRIPTYLINE HYDROCHLORIDE [Suspect]
     Active Substance: NORTRIPTYLINE HYDROCHLORIDE
  162. NORTRIPTYLINE HYDROCHLORIDE [Suspect]
     Active Substance: NORTRIPTYLINE HYDROCHLORIDE
  163. BUPROPION [Suspect]
     Active Substance: BUPROPION
     Indication: Rheumatoid arthritis
  164. BUPROPION [Suspect]
     Active Substance: BUPROPION
  165. TOCILIZUMAB [Suspect]
     Active Substance: TOCILIZUMAB
     Indication: Rheumatoid arthritis
     Dosage: 500 MILLIGRAM, Q12H, DOSE FORM, UNK, ROUTE: SUBCUTANEOUS
  166. TOCILIZUMAB [Suspect]
     Active Substance: TOCILIZUMAB
  167. TOCILIZUMAB [Suspect]
     Active Substance: TOCILIZUMAB
     Dosage: DOSE FORM, SOLUTION FOR INJECTION, ROUTE: UNK
  168. TOCILIZUMAB [Suspect]
     Active Substance: TOCILIZUMAB
  169. TOCILIZUMAB [Suspect]
     Active Substance: TOCILIZUMAB
     Dosage: 500 MILLIGRAM, BID, DOSE FORM, UNK, ROUTE: SUBCUTANEOUS
  170. TOCILIZUMAB [Suspect]
     Active Substance: TOCILIZUMAB
  171. TOCILIZUMAB [Suspect]
     Active Substance: TOCILIZUMAB
  172. TOCILIZUMAB [Suspect]
     Active Substance: TOCILIZUMAB
  173. TOCILIZUMAB [Suspect]
     Active Substance: TOCILIZUMAB
  174. HUMIRA [Suspect]
     Active Substance: ADALIMUMAB
     Indication: Product used for unknown indication
  175. HUMIRA [Suspect]
     Active Substance: ADALIMUMAB
  176. SENNOSIDES [Suspect]
     Active Substance: SENNOSIDES
     Indication: Product used for unknown indication
  177. SENNOSIDES [Suspect]
     Active Substance: SENNOSIDES
  178. SENNOSIDES [Suspect]
     Active Substance: SENNOSIDES
  179. MOXIFLOXACIN HYDROCHLORIDE [Suspect]
     Active Substance: MOXIFLOXACIN HYDROCHLORIDE
     Indication: Product used for unknown indication
  180. MOXIFLOXACIN HYDROCHLORIDE [Suspect]
     Active Substance: MOXIFLOXACIN HYDROCHLORIDE
  181. MOXIFLOXACIN HYDROCHLORIDE [Suspect]
     Active Substance: MOXIFLOXACIN HYDROCHLORIDE
  182. MOXIFLOXACIN HYDROCHLORIDE [Suspect]
     Active Substance: MOXIFLOXACIN HYDROCHLORIDE
  183. SINGULAIR [Suspect]
     Active Substance: MONTELUKAST SODIUM
     Indication: Product used for unknown indication
  184. ALPRAZOLAM [Suspect]
     Active Substance: ALPRAZOLAM
     Indication: Rheumatoid arthritis
  185. ALPRAZOLAM [Suspect]
     Active Substance: ALPRAZOLAM
  186. ROBITUSSIN AC [Suspect]
     Active Substance: CODEINE PHOSPHATE\GUAIFENESIN
     Indication: Product used for unknown indication
  187. FUROSEMIDE [Suspect]
     Active Substance: FUROSEMIDE
     Indication: Product used for unknown indication
  188. VENTOLIN [Suspect]
     Active Substance: ALBUTEROL SULFATE
     Indication: Product used for unknown indication
  189. VENLAFAXINE HYDROCHLORIDE [Suspect]
     Active Substance: VENLAFAXINE HYDROCHLORIDE
     Indication: Product used for unknown indication
  190. VENLAFAXINE HYDROCHLORIDE [Suspect]
     Active Substance: VENLAFAXINE HYDROCHLORIDE
  191. VENLAFAXINE HYDROCHLORIDE [Suspect]
     Active Substance: VENLAFAXINE HYDROCHLORIDE
  192. PANTOPRAZOLE MAGNESIUM [Suspect]
     Active Substance: PANTOPRAZOLE MAGNESIUM
     Indication: Product used for unknown indication
  193. PANTOPRAZOLE MAGNESIUM [Suspect]
     Active Substance: PANTOPRAZOLE MAGNESIUM
  194. PANTOPRAZOLE MAGNESIUM [Suspect]
     Active Substance: PANTOPRAZOLE MAGNESIUM
  195. PANTOPRAZOLE MAGNESIUM [Suspect]
     Active Substance: PANTOPRAZOLE MAGNESIUM
  196. PANTOPRAZOLE SODIUM ANHYDROUS [Suspect]
     Active Substance: PANTOPRAZOLE SODIUM ANHYDROUS
     Indication: Product used for unknown indication
  197. NORTRIPTYLINE [Suspect]
     Active Substance: NORTRIPTYLINE
     Indication: Product used for unknown indication
  198. GABAPENTIN [Suspect]
     Active Substance: GABAPENTIN
     Indication: Product used for unknown indication
  199. CRINONE [Suspect]
     Active Substance: PROGESTERONE
     Indication: Product used for unknown indication
  200. CRINONE [Suspect]
     Active Substance: PROGESTERONE
  201. RANITIDINE HYDROCHLORIDE [Suspect]
     Active Substance: RANITIDINE HYDROCHLORIDE
     Indication: Product used for unknown indication
  202. RANITIDINE HYDROCHLORIDE [Suspect]
     Active Substance: RANITIDINE HYDROCHLORIDE
     Dosage: 20 MILLIGRAM, QD, DOSE FORM: CAPSULE, ROUTE: UNK
  203. RANITIDINE HYDROCHLORIDE [Suspect]
     Active Substance: RANITIDINE HYDROCHLORIDE
  204. RANITIDINE HYDROCHLORIDE [Suspect]
     Active Substance: RANITIDINE HYDROCHLORIDE
     Dosage: 20 MG, QD (1 EVERY 1 DAYS), DOSE FORM, ROUTE: UNK
  205. RANITIDINE HYDROCHLORIDE [Suspect]
     Active Substance: RANITIDINE HYDROCHLORIDE
  206. LAMIVUDINE [Suspect]
     Active Substance: LAMIVUDINE
     Indication: Product used for unknown indication
  207. NORTRIPTYLINE HYDROCHLORIDE [Suspect]
     Active Substance: NORTRIPTYLINE HYDROCHLORIDE
     Indication: Product used for unknown indication
  208. NORTRIPTYLINE HYDROCHLORIDE [Suspect]
     Active Substance: NORTRIPTYLINE HYDROCHLORIDE
  209. SALMETEROL XINAFOATE [Suspect]
     Active Substance: SALMETEROL XINAFOATE
     Indication: Product used for unknown indication
  210. SALMETEROL XINAFOATE [Suspect]
     Active Substance: SALMETEROL XINAFOATE
  211. OXYCODONE [Suspect]
     Active Substance: OXYCODONE
     Indication: Product used for unknown indication
  212. CODEINE PHOSPHATE [Suspect]
     Active Substance: CODEINE PHOSPHATE
     Indication: Product used for unknown indication
  213. ACTEMRA [Suspect]
     Active Substance: TOCILIZUMAB
     Indication: Rheumatoid arthritis
  214. ACTEMRA [Suspect]
     Active Substance: TOCILIZUMAB
     Dosage: ROUTE: SUBCUTANEOUS
  215. ACTEMRA [Suspect]
     Active Substance: TOCILIZUMAB
     Dosage: ROUTE: SUBCUTANEOUS
  216. ACTEMRA [Suspect]
     Active Substance: TOCILIZUMAB
     Dosage: ROUTE: UNK
  217. ACTEMRA [Suspect]
     Active Substance: TOCILIZUMAB
     Dosage: ROUTE: SUBCUTANEOUS
  218. ACTEMRA [Suspect]
     Active Substance: TOCILIZUMAB
     Dosage: 50 MILLIGRAM, Q12H, ROUTE: SUBCUTANEOUS
  219. BUPROPION [Suspect]
     Active Substance: BUPROPION
     Indication: Rheumatoid arthritis
     Dosage: DOSE FORM: TABLET, ROUTE: UNK
  220. DIPHENHYDRAMINE [Suspect]
     Active Substance: DIPHENHYDRAMINE
     Indication: Rheumatoid arthritis
  221. DIPHENHYDRAMINE [Suspect]
     Active Substance: DIPHENHYDRAMINE
     Dosage: DOSE FORM: OINTMENT, ROUTE: UNK
  222. DIPHENHYDRAMINE [Suspect]
     Active Substance: DIPHENHYDRAMINE
     Dosage: DOSE FORM: OINTMENT, ROUTE: UNK
  223. HUMIRA [Suspect]
     Active Substance: ADALIMUMAB
     Indication: Product used for unknown indication
  224. HUMIRA [Suspect]
     Active Substance: ADALIMUMAB
     Indication: Product used for unknown indication
  225. SENOKOT [Suspect]
     Active Substance: SENNOSIDES
     Indication: Product used for unknown indication

REACTIONS (39)
  - Foetal death [Fatal]
  - Coeliac disease [Fatal]
  - Asthma [Fatal]
  - Exposure during pregnancy [Unknown]
  - Constipation [Fatal]
  - Psoriasis [Fatal]
  - Off label use [Not Recovered/Not Resolved]
  - Erythema [Fatal]
  - Pyrexia [Fatal]
  - Hepatic enzyme increased [Fatal]
  - Back pain [Fatal]
  - Overdose [Not Recovered/Not Resolved]
  - Contraindicated product administered [Not Recovered/Not Resolved]
  - Thrombocytopenia [Fatal]
  - Temperature regulation disorder [Fatal]
  - Hyperhidrosis [Fatal]
  - Treatment failure [Not Recovered/Not Resolved]
  - Fatigue [Fatal]
  - Upper respiratory tract infection [Fatal]
  - Hypertension [Fatal]
  - Pain [Fatal]
  - Hypersensitivity [Fatal]
  - Drug hypersensitivity [Fatal]
  - Prescribed overdose [Not Recovered/Not Resolved]
  - Food allergy [Fatal]
  - Intentional product misuse [Not Recovered/Not Resolved]
  - Fluid retention [Fatal]
  - Joint swelling [Fatal]
  - Immunodeficiency [Fatal]
  - Drug intolerance [Fatal]
  - Rheumatoid arthritis [Fatal]
  - Product use issue [Not Recovered/Not Resolved]
  - Rash erythematous [Fatal]
  - Infection [Fatal]
  - Headache [Fatal]
  - Infusion related reaction [Fatal]
  - Drug ineffective [Not Recovered/Not Resolved]
  - Rash [Fatal]
  - Bursitis [Fatal]
